FAERS Safety Report 16883694 (Version 1)
Quarter: 2019Q4

REPORT INFORMATION
  Report Type: Spontaneous
  Country: US (occurrence: US)
  Receive Date: 20191004
  Receipt Date: 20191004
  Transmission Date: 20200122
  Serious: Yes (Hospitalization)
  Sender: FDA-Public Use
  Company Number: US-ROCHE-2419934

PATIENT
  Age: 17 Year
  Sex: Male

DRUGS (2)
  1. AZTREONAM LYSINE [Suspect]
     Active Substance: AZTREONAM LYSINE
     Indication: CYSTIC FIBROSIS
     Dosage: INHALATION VAPOUR, LIQUID?INHALE 1 VIAL VIA ALTERA NEBULIZER
     Route: 055
  2. XOLAIR [Suspect]
     Active Substance: OMALIZUMAB
     Indication: CYSTIC FIBROSIS
     Dosage: UNDER THE SKIN
     Route: 058

REACTIONS (3)
  - Intentional product use issue [Unknown]
  - Pneumonia [Recovered/Resolved]
  - Off label use [Unknown]
